FAERS Safety Report 4489257-9 (Version None)
Quarter: 2004Q4

REPORT INFORMATION
  Report Type: 
  Country: None (occurrence: None)
  Receive Date: 20041029
  Receipt Date: 20030605
  Transmission Date: 20050328
  Serious: Yes (Hospitalization, Disabling)
  Sender: FDA-Public Use
  Company Number: US-MERCK-0306USA00793

PATIENT
  Age: 57 Year
  Sex: Female
  Weight: 94 kg

DRUGS (15)
  1. VIOXX [Suspect]
     Indication: ARTHRALGIA
     Route: 048
     Dates: start: 19990819
  2. VIOXX [Suspect]
     Route: 048
     Dates: start: 19990930
  3. VIOXX [Suspect]
     Route: 048
     Dates: start: 20000607
  4. VIOXX [Suspect]
     Route: 048
     Dates: start: 20000817, end: 20010109
  5. VIOXX [Suspect]
     Route: 048
     Dates: start: 20010101
  6. AMBIEN [Concomitant]
     Route: 048
  7. AMBIEN [Concomitant]
     Route: 048
  8. ASPIRIN [Concomitant]
     Route: 065
  9. TOPROL-XL [Concomitant]
     Route: 065
  10. DITROPAN XL [Concomitant]
     Route: 065
  11. LORTAB [Concomitant]
     Route: 048
  12. ZANTAC [Concomitant]
     Route: 065
  13. CARDIZEM [Concomitant]
     Route: 065
  14. DETROL [Concomitant]
     Route: 048
  15. NORVASC [Concomitant]
     Route: 048

REACTIONS (15)
  - ADVERSE EVENT [None]
  - AORTIC VALVE INCOMPETENCE [None]
  - ARTHRALGIA [None]
  - DIASTOLIC DYSFUNCTION [None]
  - DYSPNOEA [None]
  - INJURY [None]
  - INSOMNIA [None]
  - INTERVERTEBRAL DISC DEGENERATION [None]
  - LOCALISED OSTEOARTHRITIS [None]
  - MEDICATION ERROR [None]
  - MITRAL VALVE INCOMPETENCE [None]
  - OEDEMA [None]
  - PAIN [None]
  - PALPITATIONS [None]
  - SPONDYLOSIS [None]
